FAERS Safety Report 8220202-6 (Version None)
Quarter: 2012Q1

REPORT INFORMATION
  Report Type: 
  Country: None (occurrence: None)
  Receive Date: 20120320
  Receipt Date: 20120312
  Transmission Date: 20120608
  Serious: Yes (Other)
  Sender: FDA-Public Use
  Company Number: US-BAYER-2012-025632

PATIENT
  Age: 53 Year
  Sex: Male
  Weight: 115 kg

DRUGS (15)
  1. LIPITOR [Concomitant]
  2. RED BLOOD CELLS [Concomitant]
     Dosage: 3 U, UNK
     Route: 042
     Dates: start: 20060712, end: 20060712
  3. CARDIOPLEGIA [Concomitant]
     Dosage: UNK
     Dates: start: 20060712, end: 20060712
  4. VERSED [Concomitant]
     Dosage: UNK
     Dates: start: 20060712, end: 20060712
  5. HEPARIN [Concomitant]
     Dosage: UNK
     Dates: start: 20060712, end: 20060712
  6. THROMBIN LOCAL SOLUTION [Concomitant]
     Dosage: 10000 U, UNK
     Route: 042
     Dates: start: 20060712, end: 20060712
  7. TRASYLOL [Suspect]
     Indication: CORONARY ARTERY BYPASS
     Dosage: 1 ML TEST DOSE, 200 ML PUMP PRIME, FOLLOWED BY CONITINUOUS INFUSION OF 50 ML/HR
     Route: 042
     Dates: start: 20060712, end: 20060712
  8. COREG [Concomitant]
  9. FLONASE [Concomitant]
  10. ANCEF [Concomitant]
     Dosage: 2 G, UNK
     Dates: start: 20060712, end: 20060712
  11. LASIX [Concomitant]
  12. PREVACID [Concomitant]
  13. CAPTOPRIL [Concomitant]
  14. ASPIRIN [Concomitant]
  15. NPH INSULIN [Concomitant]

REACTIONS (1)
  - RENAL FAILURE [None]
